FAERS Safety Report 4314895-3 (Version None)
Quarter: 2004Q1

REPORT INFORMATION
  Report Type: 
  Country: None (occurrence: None)
  Receive Date: 20040308
  Receipt Date: 20040225
  Transmission Date: 20041129
  Serious: Yes (Hospitalization)
  Sender: FDA-Public Use
  Company Number: 2004201171SE

PATIENT
  Age: 81 Year
  Sex: Female

DRUGS (10)
  1. BEXTRA [Suspect]
     Indication: GOUT
     Dosage: 10 MG, BID, UNK
     Dates: start: 20031022, end: 20031026
  2. LISINOPRIL [Concomitant]
  3. GLYCERYL TRINITRATE [Concomitant]
  4. DEXTROPROPOXIFEN (DEXTROPROPOXYPHENE) [Concomitant]
  5. ALLOPURINOL [Concomitant]
  6. METHENAMINE (METHENAMINE) [Concomitant]
  7. HYDROCHLOROTHIAZIDE [Concomitant]
  8. THROMBYL [Concomitant]
  9. BETA BLOCKING AGENTS [Concomitant]
  10. CELECOXIB [Concomitant]

REACTIONS (6)
  - ANGIONEUROTIC OEDEMA [None]
  - DRUG INEFFECTIVE [None]
  - DYSPHAGIA [None]
  - DYSPNOEA [None]
  - ERYTHEMA [None]
  - URTICARIA [None]
